FAERS Safety Report 9099774 (Version 6)
Quarter: 2013Q1

REPORT INFORMATION
  Report Type: Spontaneous
  Country: US (occurrence: US)
  Receive Date: 20130214
  Receipt Date: 20130327
  Transmission Date: 20140127
  Serious: Yes (Death, Hospitalization)
  Sender: FDA-Public Use
  Company Number: US-JNJFOC-20130205280

PATIENT
  Age: 76 Year
  Sex: Male

DRUGS (10)
  1. XARELTO [Suspect]
     Indication: THROMBOSIS PROPHYLAXIS
     Route: 048
  2. XARELTO [Suspect]
     Indication: KNEE ARTHROPLASTY
     Route: 048
  3. NIASPAN [Concomitant]
     Route: 065
  4. DIOVAN [Concomitant]
     Route: 065
  5. ASPIRIN [Concomitant]
     Route: 065
  6. PLAVIX [Concomitant]
     Route: 065
  7. COREG [Concomitant]
     Route: 065
  8. AMLODIPINE [Concomitant]
     Route: 065
  9. ATORVASTATIN [Concomitant]
     Route: 065
  10. LASIX [Concomitant]
     Route: 065

REACTIONS (1)
  - Gastrointestinal haemorrhage [Fatal]
